FAERS Safety Report 7059931-9 (Version None)
Quarter: 2010Q4

REPORT INFORMATION
  Report Type: 
  Country: None (occurrence: None)
  Receive Date: 20101025
  Receipt Date: 20101021
  Transmission Date: 20110411
  Serious: No
  Sender: FDA-Public Use
  Company Number: US-TEVA-252426USA

PATIENT
  Age: 68 Year
  Sex: Female
  Weight: 89.892 kg

DRUGS (1)
  1. ALBUTEROL SULFATE AUTOHALER [Suspect]
     Route: 055

REACTIONS (3)
  - COUGH [None]
  - FEELING ABNORMAL [None]
  - HEADACHE [None]
